FAERS Safety Report 9969942 (Version 1)
Quarter: 2014Q1

REPORT INFORMATION
  Report Type: Spontaneous
  Country: US (occurrence: US)
  Receive Date: 20140306
  Receipt Date: 20140306
  Transmission Date: 20141002
  Serious: No
  Sender: FDA-Public Use
  Company Number: US-SA-2014SA009164

PATIENT
  Age: 78 Year
  Sex: Female

DRUGS (1)
  1. GAVISCON [Suspect]
     Indication: DYSPEPSIA
     Route: 065
     Dates: start: 20140116, end: 20140116

REACTIONS (3)
  - Glossitis [Recovered/Resolved]
  - Feeling abnormal [Recovered/Resolved]
  - Glossitis [Recovered/Resolved]
